FAERS Safety Report 14077333 (Version 2)
Quarter: 2018Q1

REPORT INFORMATION
  Report Type: Report from Study
  Country: IE (occurrence: IE)
  Receive Date: 20171012
  Receipt Date: 20180109
  Transmission Date: 20180508
  Serious: Yes (Hospitalization, Other)
  Sender: FDA-Public Use
  Company Number: IE-AMGEN-IRLSL2017151545

PATIENT
  Age: 76 Year
  Sex: Female

DRUGS (16)
  1. ARANESP [Suspect]
     Active Substance: DARBEPOETIN ALFA
     Indication: CHRONIC KIDNEY DISEASE
     Dosage: UNK
     Route: 058
  2. BUMETANIDE. [Concomitant]
     Active Substance: BUMETANIDE
     Dosage: 2 MG, QD
  3. TRANSIDERM [Concomitant]
     Dosage: 5 MG, QD
  4. CLOPIDOGREL [Concomitant]
     Active Substance: CLOPIDOGREL BISULFATE
     Dosage: 75 MG, QD
  5. PARACETAMOL [Concomitant]
     Active Substance: ACETAMINOPHEN
     Dosage: 1 G, T.D.S
  6. PRAVASTINE [Concomitant]
     Dosage: 40 MG, QD
  7. NOVORAPID [Concomitant]
     Active Substance: INSULIN ASPART
     Dosage: 20 UNIT, T.D.S
  8. GALFER [Concomitant]
     Active Substance: IRON
     Dosage: 305 MG, QD
  9. ASPIRIN. [Concomitant]
     Active Substance: ASPIRIN
     Dosage: 75 MG, QD
  10. BISOPROLOL [Concomitant]
     Active Substance: BISOPROLOL
     Dosage: 2.5 MG, QD
  11. LANTUS [Concomitant]
     Active Substance: INSULIN GLARGINE
     Dosage: 30 UNIT, QD
  12. TRIMETHOPRIM. [Concomitant]
     Active Substance: TRIMETHOPRIM
     Dosage: 100 MG, QD
  13. DESUNIN [Concomitant]
     Active Substance: CHOLECALCIFEROL
     Dosage: 800 UNIT, QD
  14. FOLIC ACID. [Concomitant]
     Active Substance: FOLIC ACID
     Dosage: 5 MG, QD
  15. LERCANIDIPINE [Concomitant]
     Active Substance: LERCANIDIPINE
     Dosage: 20 MG, QD
  16. ARANESP [Suspect]
     Active Substance: DARBEPOETIN ALFA
     Dosage: 50 MUG, QWK
     Route: 058
     Dates: start: 20171003

REACTIONS (4)
  - Peripheral artery bypass [Unknown]
  - Gangrene [Not Recovered/Not Resolved]
  - Localised infection [Not Recovered/Not Resolved]
  - Neuropathy peripheral [Not Recovered/Not Resolved]

NARRATIVE: CASE EVENT DATE: 201708
